FAERS Safety Report 18944551 (Version 1)
Quarter: 2021Q1

REPORT INFORMATION
  Report Type: Spontaneous
  Country: US (occurrence: US)
  Receive Date: 20210226
  Receipt Date: 20210226
  Transmission Date: 20210420
  Serious: No
  Sender: FDA-Public Use
  Company Number: US-HIKMA PHARMACEUTICALS USA INC.-US-H14001-20-04651

PATIENT
  Sex: Male

DRUGS (1)
  1. MEPERIDINE HYDROCHLORIDE. [Suspect]
     Active Substance: MEPERIDINE HYDROCHLORIDE
     Indication: SPINAL CORD INJURY
     Dosage: UNKNOWN
     Route: 048

REACTIONS (5)
  - Lung disorder [Unknown]
  - Gastrointestinal disorder [Unknown]
  - Oropharyngeal discomfort [Unknown]
  - Drug ineffective [Unknown]
  - Oral discomfort [Unknown]
